FAERS Safety Report 12470015 (Version 1)
Quarter: 2016Q2

REPORT INFORMATION
  Report Type: Spontaneous
  Country: GB (occurrence: GB)
  Receive Date: 20160615
  Receipt Date: 20160615
  Transmission Date: 20160815
  Serious: Yes (Other)
  Sender: FDA-Public Use
  Company Number: GB-ROCHE-1747955

PATIENT
  Age: 73 Year
  Sex: Male

DRUGS (9)
  1. GAZYVARO [Suspect]
     Active Substance: OBINUTUZUMAB
     Route: 042
     Dates: start: 20160421, end: 20160421
  2. PARACETAMOL [Concomitant]
     Active Substance: ACETAMINOPHEN
     Route: 065
     Dates: start: 20160421
  3. PARACETAMOL [Concomitant]
     Active Substance: ACETAMINOPHEN
     Indication: PREMEDICATION
     Route: 065
     Dates: start: 20160324
  4. RASBURICASE [Concomitant]
     Active Substance: RASBURICASE
     Dosage: 1 STAT DOSE BEFORE CHEMOTHERAPY
     Route: 042
     Dates: start: 20160323, end: 20160323
  5. GAZYVARO [Suspect]
     Active Substance: OBINUTUZUMAB
     Indication: CHRONIC LYMPHOCYTIC LEUKAEMIA
     Route: 042
     Dates: start: 20160323, end: 20160323
  6. DEXAMETHASONE. [Concomitant]
     Active Substance: DEXAMETHASONE
     Indication: PREMEDICATION
     Route: 065
     Dates: start: 20160324
  7. PREDNISONE. [Concomitant]
     Active Substance: PREDNISONE
     Indication: PREMEDICATION
     Route: 065
     Dates: start: 20160421
  8. GAZYVARO [Suspect]
     Active Substance: OBINUTUZUMAB
     Route: 042
     Dates: start: 20160324, end: 20160324
  9. DISPRIN [Concomitant]
     Active Substance: ASPIRIN
     Dosage: AS NEEDED.
     Route: 048

REACTIONS (9)
  - Dyspnoea [Recovered/Resolved]
  - Hyperhidrosis [Recovered/Resolved]
  - Cough [Unknown]
  - Cold sweat [Recovered/Resolved]
  - Flushing [Recovered/Resolved]
  - Infusion related reaction [Unknown]
  - Skin discolouration [Recovered/Resolved]
  - Blood pressure increased [Recovered/Resolved]
  - Chills [Recovered/Resolved]

NARRATIVE: CASE EVENT DATE: 20160323
